FAERS Safety Report 12517172 (Version 1)
Quarter: 2016Q2

REPORT INFORMATION
  Report Type: Other
  Country: US (occurrence: AR)
  Receive Date: 20160630
  Receipt Date: 20160630
  Transmission Date: 20160815
  Serious: Yes (Congenital Anomaly)
  Sender: FDA-Public Use
  Company Number: AR-SILARX PHARMACEUTICALS, INC-1054486

PATIENT
  Age: 1 Day
  Sex: Female
  Weight: 2.8 kg

DRUGS (5)
  1. LAMIVUDINE SOLUTION [Suspect]
     Active Substance: LAMIVUDINE
     Route: 048
  2. ISENTRESS [Concomitant]
     Active Substance: RALTEGRAVIR POTASSIUM
     Route: 048
     Dates: start: 20130130
  3. TENOFOVIR DISOPROXIL FUMARATE. [Concomitant]
     Active Substance: TENOFOVIR DISOPROXIL FUMARATE
     Route: 048
  4. REYATAZ [Concomitant]
     Active Substance: ATAZANAVIR SULFATE
     Route: 048
  5. NORVIR [Concomitant]
     Active Substance: RITONAVIR
     Route: 048

REACTIONS (2)
  - Congenital anomaly [Unknown]
  - Heart disease congenital [None]
